FAERS Safety Report 9226299 (Version 1)
Quarter: 2013Q2

REPORT INFORMATION
  Report Type: Spontaneous
  Country: ES (occurrence: ES)
  Receive Date: 20130411
  Receipt Date: 20130411
  Transmission Date: 20140414
  Serious: Yes (Other)
  Sender: FDA-Public Use
  Company Number: ES-GENZYME-THYM-1003744

PATIENT
  Age: 49 Year
  Sex: Female

DRUGS (1)
  1. THYMOGLOBULINE [Suspect]
     Indication: BONE MARROW CONDITIONING REGIMEN
     Dosage: 2 MG/KG, QD (DAY -2 AND -3)
     Route: 065
     Dates: start: 201303, end: 201303

REACTIONS (1)
  - Hepatitis [Unknown]
